FAERS Safety Report 19272595 (Version 1)
Quarter: 2021Q2

REPORT INFORMATION
  Report Type: Report from Study
  Country: US (occurrence: US)
  Receive Date: 20210518
  Receipt Date: 20210518
  Transmission Date: 20210717
  Serious: No
  Sender: FDA-Public Use
  Company Number: NVSC2021US105799

PATIENT
  Sex: Female

DRUGS (1)
  1. COSENTYX [Suspect]
     Active Substance: SECUKINUMAB
     Indication: AXIAL SPONDYLOARTHRITIS
     Dosage: 150 MG, QMO
     Route: 058

REACTIONS (5)
  - Illness [Unknown]
  - Pain [Recovering/Resolving]
  - Diarrhoea [Unknown]
  - Nasopharyngitis [Unknown]
  - Fatigue [Recovering/Resolving]
